FAERS Safety Report 15563195 (Version 2)
Quarter: 2018Q4

REPORT INFORMATION
  Report Type: Spontaneous
  Country: SI (occurrence: SI)
  Receive Date: 20181029
  Receipt Date: 20181115
  Transmission Date: 20190205
  Serious: Yes (Other)
  Sender: FDA-Public Use
  Company Number: SI-BAYER-2018-195395

PATIENT
  Age: 62 Year
  Sex: Male

DRUGS (6)
  1. BISOPROLOL [Concomitant]
     Active Substance: BISOPROLOL
     Dosage: UNK
  2. INDAPAMIDE W/PERINDOPRIL [Concomitant]
     Active Substance: INDAPAMIDE\PERINDOPRIL
     Dosage: UNK
  3. IVABRADINE [Concomitant]
     Active Substance: IVABRADINE
     Dosage: UNK
  4. STATIN [Concomitant]
     Active Substance: UNSPECIFIED INGREDIENT
     Dosage: UNK
  5. ASPIRIN PROTECT 100 MG [Suspect]
     Active Substance: ASPIRIN
     Dosage: UNK
     Dates: start: 2003
  6. EPLERENONE. [Concomitant]
     Active Substance: EPLERENONE
     Dosage: UNK

REACTIONS (8)
  - Atrioventricular block [None]
  - Coronary artery disease [None]
  - Cardiac failure [None]
  - Dyspnoea [None]
  - Mitral valve incompetence [None]
  - Fatigue [None]
  - Peripheral coldness [None]
  - Acute myocardial infarction [None]

NARRATIVE: CASE EVENT DATE: 2011
